FAERS Safety Report 26195342 (Version 1)
Quarter: 2025Q4

REPORT INFORMATION
  Report Type: Spontaneous
  Country: EU (occurrence: EU)
  Receive Date: 20251224
  Receipt Date: 20251224
  Transmission Date: 20260117
  Serious: Yes (Hospitalization)
  Sender: GLAXOSMITHKLINE
  Company Number: None

PATIENT
  Age: 40 Year
  Sex: Female
  Weight: 40 kg

DRUGS (11)
  1. LAMOTRIGINE [Suspect]
     Active Substance: LAMOTRIGINE
     Indication: Product used for unknown indication
     Dosage: 150 MG (LONG-TERM MEDICATION), CERTAIN EXPOSURE)
  2. CHOLECALCIFEROL [Suspect]
     Active Substance: CHOLECALCIFEROL
     Indication: Product used for unknown indication
     Dosage: 1 DF (1 TABLET, (LONG-TERM MEDICATION), CERTAIN EXPOSURE)
  3. FUROSEMIDE [Suspect]
     Active Substance: FUROSEMIDE
     Indication: Product used for unknown indication
     Dosage: 1 DF (1 TABLET (MIX-UP), CERTAIN EXPOSURE-FUROSEMIDE 40)
  4. JARDIANCE [Suspect]
     Active Substance: EMPAGLIFLOZIN
     Indication: Product used for unknown indication
     Dosage: 1 DF (1 TABLET (MIX-UP), CERTAIN EXPOSURE-JARDIANCE 10)
  5. METFORMIN [Suspect]
     Active Substance: METFORMIN HYDROCHLORIDE
     Indication: Product used for unknown indication
     Dosage: 1 DF (1 TABLET (MIX-UP), CERTAIN EXPOSURE-METFORMIN 500)
  6. LISINOPRIL [Suspect]
     Active Substance: LISINOPRIL
     Indication: Product used for unknown indication
     Dosage: 1 DF (1 TABLET (MIX-UP), CERTAIN EXPOSURE-LISINOPRIL 5)
  7. METOPROLOL [Suspect]
     Active Substance: METOPROLOL
     Indication: Product used for unknown indication
     Dosage: 1 DF (1 TABLET (MIX-UP), CERTAIN EXPOSURE-METOPROLOL 50)
  8. RISPERIDONE [Suspect]
     Active Substance: RISPERIDONE
     Indication: Product used for unknown indication
     Dosage: 1 DF (1 TABLET (MIX-UP), CERTAIN EXPOSURE- RISPERIDONE 0.5 MG)
  9. SERTRALINE [Suspect]
     Active Substance: SERTRALINE HYDROCHLORIDE
     Indication: Product used for unknown indication
     Dosage: 150 MG (MIX-UP), CERTAIN EXPOSURE)
  10. VALPROATE [Suspect]
     Active Substance: VALPROIC ACID
     Indication: Product used for unknown indication
     Dosage: 1 DF (1 TABLET (LONG-TERM MEDICATION), CERTAIN EXPOSURE-VALPROAT 500 MG)
  11. FRESUBIN [Concomitant]
     Active Substance: AMINO ACIDS\DEXTROSE\ELECTROLYTES NOS\SOYBEAN OIL\VITAMINS
     Indication: Product used for unknown indication
     Dosage: UNK
     Route: 065

REACTIONS (1)
  - Hypotension [Unknown]

NARRATIVE: CASE EVENT DATE: 20251202
